FAERS Safety Report 10053589 (Version 1)
Quarter: 2014Q2

REPORT INFORMATION
  Report Type: Spontaneous
  Country: US (occurrence: US)
  Receive Date: 20140402
  Receipt Date: 20140402
  Transmission Date: 20141212
  Serious: No
  Sender: FDA-Public Use
  Company Number: US-TEVA-470883USA

PATIENT
  Age: 78 Year
  Sex: Male
  Weight: 96.25 kg

DRUGS (3)
  1. PROAIR HFA [Suspect]
     Indication: ASTHMA
     Dates: start: 20140320
  2. LISINOPRIL [Concomitant]
     Indication: HYPERTENSION
  3. ADVAIR [Concomitant]
     Indication: ASTHMA

REACTIONS (2)
  - Rash generalised [Recovered/Resolved]
  - Skin burning sensation [Recovered/Resolved]
